FAERS Safety Report 5157293-5 (Version None)
Quarter: 2006Q4

REPORT INFORMATION
  Report Type: 
  Country: None (occurrence: None)
  Receive Date: 20061127
  Receipt Date: 20050504
  Transmission Date: 20070319
  Serious: Yes (Other)
  Sender: FDA-Public Use
  Company Number: PHNU2005DE01899

PATIENT
  Sex: Male
  Weight: 80 kg

DRUGS (3)
  1. LHRH FERRING [Concomitant]
     Route: 065
  2. ZOMETA [Suspect]
     Indication: METASTASES TO BONE
     Dosage: 4 MG, QMO
     Dates: start: 20041201
  3. ZOMETA [Suspect]
     Dosage: 4 MG EVERY 6 WEEKS

REACTIONS (8)
  - BONE DEVELOPMENT ABNORMAL [None]
  - GYNAECOMASTIA [None]
  - IMPAIRED HEALING [None]
  - INFUSION RELATED REACTION [None]
  - MUSCULOSKELETAL CHEST PAIN [None]
  - OSTEONECROSIS [None]
  - RADIOTHERAPY [None]
  - TOOTH EXTRACTION [None]
